FAERS Safety Report 5345182-2 (Version None)
Quarter: 2007Q2

REPORT INFORMATION
  Report Type: 
  Country: None (occurrence: None)
  Receive Date: 20070423
  Receipt Date: 20070206
  Transmission Date: 20071010
  Serious: Yes (Hospitalization)
  Sender: FDA-Public Use
  Company Number: 0612-896

PATIENT
  Age: 21 Year
  Sex: Female

DRUGS (2)
  1. ALBUTEROL SULATE [Suspect]
     Dosage: 3.6 ML, 1
     Dates: start: 20061015
  2. TRACTOCILE [Concomitant]

REACTIONS (2)
  - HYPOTENSION [None]
  - TACHYCARDIA [None]
